FAERS Safety Report 12194440 (Version 6)
Quarter: 2016Q2

REPORT INFORMATION
  Report Type: Report from Study
  Country: US (occurrence: US)
  Receive Date: 20160321
  Receipt Date: 20160625
  Transmission Date: 20160815
  Serious: Yes (Other)
  Sender: FDA-Public Use
  Company Number: PHEH2016US006240

PATIENT
  Age: 64 Year
  Sex: Male

DRUGS (9)
  1. LEVEMIR [Concomitant]
     Active Substance: INSULIN DETEMIR
     Indication: PRODUCT USED FOR UNKNOWN INDICATION
     Route: 065
  2. LASIX [Concomitant]
     Active Substance: FUROSEMIDE
     Indication: PRODUCT USED FOR UNKNOWN INDICATION
     Route: 065
  3. SANDOSTATIN LAR DEPOT [Suspect]
     Active Substance: OCTREOTIDE ACETATE
     Indication: CARCINOID SYNDROME
     Dosage: 30 MG
     Route: 030
     Dates: start: 201202
  4. SANDOSTATIN LAR DEPOT [Suspect]
     Active Substance: OCTREOTIDE ACETATE
     Indication: NEUROENDOCRINE TUMOUR
     Dosage: 30 MG, QMO
     Route: 058
     Dates: start: 20121031
  5. ROHYPNOL [Concomitant]
     Active Substance: FLUNITRAZEPAM
     Indication: PRODUCT USED FOR UNKNOWN INDICATION
     Route: 065
  6. STENDRA [Concomitant]
     Active Substance: AVANAFIL
     Indication: PRODUCT USED FOR UNKNOWN INDICATION
     Route: 065
  7. VITAMIN D3 [Suspect]
     Active Substance: CHOLECALCIFEROL
     Indication: PRODUCT USED FOR UNKNOWN INDICATION
     Dosage: 200 MG, UNK
     Route: 065
  8. NOVOLOG [Concomitant]
     Active Substance: INSULIN ASPART
     Indication: PRODUCT USED FOR UNKNOWN INDICATION
     Route: 065
  9. LEVITRA [Concomitant]
     Active Substance: VARDENAFIL HYDROCHLORIDE TRIHYDRATE
     Indication: PRODUCT USED FOR UNKNOWN INDICATION
     Route: 065

REACTIONS (5)
  - Hepatic neoplasm [Unknown]
  - Incorrect route of drug administration [Unknown]
  - Needle issue [Unknown]
  - Product quality issue [Unknown]
  - Type 2 diabetes mellitus [Unknown]

NARRATIVE: CASE EVENT DATE: 20121031
